FAERS Safety Report 9000078 (Version 2)
Quarter: 2013Q1

REPORT INFORMATION
  Report Type: Spontaneous
  Country: FR (occurrence: FR)
  Receive Date: 20130102
  Receipt Date: 20130131
  Transmission Date: 20140127
  Serious: Yes (Hospitalization)
  Sender: FDA-Public Use
  Company Number: FR-SANOFI-AVENTIS-2012SA094836

PATIENT
  Sex: Female

DRUGS (17)
  1. TAXOTERE [Suspect]
     Indication: BREAST CANCER
     Route: 042
     Dates: start: 20110830
  2. TAXOTERE [Suspect]
     Indication: BREAST CANCER
     Route: 042
  3. TAXOTERE [Suspect]
     Indication: BREAST CANCER
     Route: 042
     Dates: end: 20111011
  4. KARDEGIC [Suspect]
     Indication: PRODUCT USED FOR UNKNOWN INDICATION
     Route: 048
  5. TRASTUZUMAB [Suspect]
     Indication: BREAST CANCER
     Route: 042
  6. TRASTUZUMAB [Suspect]
     Indication: BREAST CANCER
     Route: 042
     Dates: end: 20111011
  7. TRASTUZUMAB [Suspect]
     Indication: BREAST CANCER
     Dosage: CYCLE 4 -13
     Route: 042
     Dates: start: 20120124, end: 20120801
  8. TRASTUZUMAB [Suspect]
     Indication: BREAST CANCER
     Route: 042
     Dates: start: 20110830
  9. FLUOROURACIL [Suspect]
     Indication: BREAST CANCER
     Dosage: CYCLE 1 -3
     Route: 042
     Dates: start: 20110628
  10. EPIRUBICIN [Suspect]
     Indication: BREAST CANCER
     Dosage: CYCLE 1-3
     Route: 042
     Dates: start: 20110628
  11. CYCLOPHOSPHAMIDE [Suspect]
     Indication: BREAST CANCER
     Dosage: CYCLE 1-3
     Route: 042
     Dates: start: 20110628
  12. ENALAPRIL MALEATE\LERCANIDIPINE HYDROCHLORIDE [Suspect]
     Indication: PRODUCT USED FOR UNKNOWN INDICATION
     Route: 048
  13. BISOPROLOL [Suspect]
     Indication: PRODUCT USED FOR UNKNOWN INDICATION
     Route: 048
  14. GLICLAZIDE [Suspect]
     Indication: PRODUCT USED FOR UNKNOWN INDICATION
     Route: 048
  15. ARIXTRA [Suspect]
     Indication: PRODUCT USED FOR UNKNOWN INDICATION
     Route: 058
  16. UVEDOSE [Suspect]
     Indication: PRODUCT USED FOR UNKNOWN INDICATION
     Route: 048
  17. FERROUS SULFATE [Suspect]
     Indication: PRODUCT USED FOR UNKNOWN INDICATION
     Route: 048

REACTIONS (1)
  - Pulmonary arterial hypertension [Not Recovered/Not Resolved]
